FAERS Safety Report 8070181-X (Version None)
Quarter: 2012Q1

REPORT INFORMATION
  Report Type: 
  Country: None (occurrence: None)
  Receive Date: 20120125
  Receipt Date: 20120113
  Transmission Date: 20120608
  Serious: Yes (Hospitalization, Disabling)
  Sender: FDA-Public Use
  Company Number: DK-ACTELION-A-CH2010-35781

PATIENT
  Sex: Female
  Weight: 70 kg

DRUGS (14)
  1. LACTULOSE [Concomitant]
  2. FUROSEMIDE [Concomitant]
  3. POTASSIUM CHLORIDE [Concomitant]
  4. NEXIUM [Concomitant]
  5. PINEX [Concomitant]
     Indication: SCLERODERMA
     Dosage: 500 MG, Q6HRS
     Route: 048
  6. TRACLEER [Suspect]
     Indication: SKIN ULCER
     Dosage: 125 MG, BID
     Route: 048
     Dates: start: 20061001, end: 20100120
  7. INSULIN [Concomitant]
  8. JERN C [Concomitant]
  9. HJERDYL [Concomitant]
  10. PREDNISOLONE [Concomitant]
  11. TRAMADOL HCL [Concomitant]
  12. TRACLEER [Suspect]
     Dosage: UNK
     Route: 048
  13. ADALAT [Concomitant]
  14. SPIRONOLACTONE [Concomitant]

REACTIONS (7)
  - ASCITES [None]
  - BIOPSY LIVER [None]
  - SKIN ULCER [None]
  - HEPATIC CIRRHOSIS [None]
  - CONDITION AGGRAVATED [None]
  - BLOOD ALKALINE PHOSPHATASE INCREASED [None]
  - NO THERAPEUTIC RESPONSE [None]
